FAERS Safety Report 8793185 (Version 1)
Quarter: 2012Q4

REPORT INFORMATION
  Report Type: 
  Country: US (occurrence: US)
  Receive Date: 20120918
  Receipt Date: 20120918
  Transmission Date: 20130627
  Serious: Yes (Other)
  Sender: FDA-Public Use
  Company Number: US-ABBOTT-12P-163-0980124-00

PATIENT

DRUGS (2)
  1. HUMIRA [Suspect]
     Indication: CROHN^S DISEASE
  2. HUMIRA [Suspect]

REACTIONS (2)
  - Prostate cancer [Unknown]
  - Surgery [Unknown]
